FAERS Safety Report 8508720-4 (Version None)
Quarter: 2012Q3

REPORT INFORMATION
  Report Type: 
  Country: None (occurrence: None)
  Receive Date: 20120703
  Receipt Date: 20120625
  Transmission Date: 20120928
  Serious: Yes (Other)
  Sender: FDA-Public Use
  Company Number: AUR-APL-2012-02836

PATIENT
  Sex: Female

DRUGS (3)
  1. AMITRIPTYLINE HCL [Suspect]
     Indication: PRODUCT USED FOR UNKNOWN INDICATION
  2. METFFORMIN HYDROCHLORIDE [Suspect]
     Indication: TYPE 2 DIABETES MELLITUS
  3. LYRICA [Suspect]
     Indication: PAIN IN EXTREMITY
     Dates: start: 20111101

REACTIONS (4)
  - PAIN IN EXTREMITY [None]
  - HUNGER [None]
  - NEUROPATHY PERIPHERAL [None]
  - WEIGHT INCREASED [None]
